FAERS Safety Report 26146344 (Version 1)
Quarter: 2025Q4

REPORT INFORMATION
  Report Type: Spontaneous
  Country: US (occurrence: US)
  Receive Date: 20251211
  Receipt Date: 20251211
  Transmission Date: 20260117
  Serious: No
  Sender: SUNOVION
  Company Number: US-SMPA-2025SPA015347

PATIENT
  Age: 78 Year
  Sex: Male

DRUGS (1)
  1. GEMTESA [Suspect]
     Active Substance: VIBEGRON
     Indication: Product used for unknown indication
     Dosage: 75 MG
     Route: 048

REACTIONS (3)
  - Sleep apnoea syndrome [Unknown]
  - Constipation [Unknown]
  - Therapeutic product effect delayed [Unknown]
